FAERS Safety Report 17416342 (Version 2)
Quarter: 2020Q1

REPORT INFORMATION
  Report Type: Spontaneous
  Country: US (occurrence: US)
  Receive Date: 20200213
  Receipt Date: 20200219
  Transmission Date: 20200409
  Serious: Yes (Other)
  Sender: FDA-Public Use
  Company Number: US-PURDUE-USA-2020-0149919

PATIENT
  Sex: Female

DRUGS (3)
  1. COLACE 2 IN 1 [Suspect]
     Active Substance: DOCUSATE SODIUM\SENNOSIDES
     Indication: CONSTIPATION
     Dosage: UNK
     Route: 048
  2. COLACE 2 IN 1 [Suspect]
     Active Substance: DOCUSATE SODIUM\SENNOSIDES
     Indication: FAECES HARD
     Dosage: 3 TABLET, DAILY
     Route: 048
     Dates: start: 20200207
  3. COLACE 2 IN 1 [Suspect]
     Active Substance: DOCUSATE SODIUM\SENNOSIDES
     Dosage: 5 TABLET, DAILY
     Route: 048
     Dates: start: 20200208, end: 20200208

REACTIONS (2)
  - Ventricular fibrillation [Unknown]
  - Constipation [Recovered/Resolved]
